FAERS Safety Report 6807675-8 (Version None)
Quarter: 2010Q2

REPORT INFORMATION
  Report Type: 
  Country: None (occurrence: None)
  Receive Date: 20100629
  Receipt Date: 20081107
  Transmission Date: 20101027
  Serious: No
  Sender: FDA-Public Use
  Company Number: US-PFIZER INC-2008094256

PATIENT
  Sex: Female
  Weight: 72.57 kg

DRUGS (6)
  1. ZYVOX [Suspect]
     Indication: STAPHYLOCOCCAL INFECTION
     Dates: start: 20060101
  2. MIACALCIN [Concomitant]
  3. NEURONTIN [Concomitant]
  4. BACLOFEN [Concomitant]
  5. WARFARIN [Concomitant]
  6. AMBIEN [Concomitant]

REACTIONS (4)
  - CIRCUMSTANCE OR INFORMATION CAPABLE OF LEADING TO MEDICATION ERROR [None]
  - MYALGIA [None]
  - PALPITATIONS [None]
  - STAPHYLOCOCCAL INFECTION [None]
